FAERS Safety Report 5398405-8 (Version None)
Quarter: 2007Q3

REPORT INFORMATION
  Report Type: 
  Country: None (occurrence: None)
  Receive Date: 20070726
  Receipt Date: 20070329
  Transmission Date: 20080115
  Serious: No
  Sender: FDA-Public Use
  Company Number: US-AMGEN-KDL217577

PATIENT
  Sex: Male
  Weight: 156.2 kg

DRUGS (6)
  1. PROCRIT [Suspect]
     Indication: RENAL FAILURE CHRONIC
     Dates: start: 20070201, end: 20070301
  2. NEURONTIN [Concomitant]
  3. ZOLOFT [Concomitant]
  4. TOPRAL [Concomitant]
  5. LIPITOR [Concomitant]
  6. HYDROCODONE BITARTRATE [Concomitant]

REACTIONS (5)
  - DYSPHAGIA [None]
  - ODYNOPHAGIA [None]
  - SPEECH DISORDER [None]
  - THROAT TIGHTNESS [None]
  - URTICARIA [None]
